FAERS Safety Report 5340976-1 (Version None)
Quarter: 2007Q2

REPORT INFORMATION
  Report Type: 
  Country: None (occurrence: None)
  Receive Date: 20070530
  Receipt Date: 20070516
  Transmission Date: 20071010
  Serious: Yes (Other)
  Sender: FDA-Public Use
  Company Number: 237880K06USA

PATIENT
  Age: 38 Year
  Sex: Female
  Weight: 108.8633 kg

DRUGS (5)
  1. REBIF [Suspect]
     Indication: MULTIPLE SCLEROSIS
     Dosage: 44 MCG, 3 IN 1 WEEKS, SUBCUTANEOUS
     Route: 058
     Dates: start: 20060830
  2. PREVACID [Concomitant]
  3. ESTRADIOL (ESTRADIOL /00045401/) [Concomitant]
  4. PAXIL [Concomitant]
  5. XANAX [Concomitant]

REACTIONS (3)
  - CONVULSION [None]
  - DROOLING [None]
  - MUSCLE SPASTICITY [None]
